FAERS Safety Report 7296496-0 (Version None)
Quarter: 2011Q1

REPORT INFORMATION
  Report Type: 
  Country: None (occurrence: None)
  Receive Date: 20110216
  Receipt Date: 20110202
  Transmission Date: 20110831
  Serious: Yes (Other)
  Sender: FDA-Public Use
  Company Number: PHHY2010US64827

PATIENT
  Sex: Male

DRUGS (6)
  1. BACLOFEN [Concomitant]
     Dosage: UNK
  2. EXTAVIA [Suspect]
     Indication: MULTIPLE SCLEROSIS
     Dosage: 0.25 MG (1 ML), QOD
     Route: 058
     Dates: start: 20100917
  3. STEROIDS NOS [Concomitant]
     Indication: MULTIPLE SCLEROSIS RELAPSE
     Dosage: UNK
  4. ADVIL [Concomitant]
     Dosage: UNK
  5. PREDNISONE TAB [Concomitant]
     Dosage: UNK
  6. ZOLOFT [Concomitant]
     Dosage: UNK

REACTIONS (17)
  - THOUGHT BLOCKING [None]
  - COORDINATION ABNORMAL [None]
  - HEADACHE [None]
  - IMPAIRED WORK ABILITY [None]
  - DEPRESSED MOOD [None]
  - MEMORY IMPAIRMENT [None]
  - FEELING ABNORMAL [None]
  - INSOMNIA [None]
  - VISION BLURRED [None]
  - IRRITABILITY [None]
  - DRUG INEFFECTIVE [None]
  - FATIGUE [None]
  - MUSCLE SPASMS [None]
  - IMPAIRED DRIVING ABILITY [None]
  - WEIGHT INCREASED [None]
  - PAIN IN EXTREMITY [None]
  - DIZZINESS [None]
